FAERS Safety Report 11624785 (Version 2)
Quarter: 2015Q4

REPORT INFORMATION
  Report Type: Report from Study
  Country: AT (occurrence: AT)
  Receive Date: 20151013
  Receipt Date: 20151126
  Transmission Date: 20160304
  Serious: Yes (Hospitalization, Other)
  Sender: FDA-Public Use
  Company Number: PHHY2015AT108078

PATIENT
  Sex: Female
  Weight: 78 kg

DRUGS (12)
  1. LOVENOX [Concomitant]
     Active Substance: ENOXAPARIN SODIUM
     Indication: PRODUCT USED FOR UNKNOWN INDICATION
     Dosage: 40 MG (1 DF), QD
     Route: 065
     Dates: start: 20150819, end: 20150824
  2. EXCIPIAL U LIPOLOT [Concomitant]
     Active Substance: UREA
     Indication: DRY SKIN
     Dosage: UNK UNK, PRN
     Route: 065
     Dates: start: 201508
  3. PERFALGAN [Concomitant]
     Active Substance: ACETAMINOPHEN
     Indication: PRODUCT USED FOR UNKNOWN INDICATION
     Dosage: 10 MG/ML, UNK
     Route: 065
     Dates: start: 20150822, end: 20150824
  4. CO-MEPRIL [Concomitant]
     Indication: HYPERTENSION
     Dosage: UNK UNK, QD (1-0-0)
     Route: 065
     Dates: start: 2008
  5. NACL [Concomitant]
     Active Substance: SODIUM CHLORIDE
     Indication: PRODUCT USED FOR UNKNOWN INDICATION
     Dosage: 1 DF, QD
     Route: 041
     Dates: start: 20150819, end: 20150824
  6. SIMVASTATIN. [Concomitant]
     Active Substance: SIMVASTATIN
     Indication: HYPERTENSION
     Dosage: 20 MG, QD (0-0-1)
     Route: 065
     Dates: start: 2008
  7. EXEMESTAN [Concomitant]
     Active Substance: EXEMESTANE
     Indication: PRODUCT USED FOR UNKNOWN INDICATION
     Dosage: 25 MG, QD
     Route: 065
     Dates: start: 20150803
  8. THYREX [Concomitant]
     Active Substance: LEVOTHYROXINE SODIUM
     Indication: HYPOTHYROIDISM
     Dosage: 0.1 UG, QD (1-0-0)
     Route: 065
     Dates: start: 2000
  9. XGEVA [Concomitant]
     Active Substance: DENOSUMAB
     Indication: BREAST CANCER
     Dosage: UNK
     Route: 065
     Dates: start: 201307
  10. FERRO GRADUMET [Concomitant]
     Active Substance: FERROUS SULFATE\FERROUS SULFATE, DRIED
     Indication: PRODUCT USED FOR UNKNOWN INDICATION
     Dosage: 1 DF, QD
     Route: 065
  11. VITAMINS WITH MINERALS [Concomitant]
     Active Substance: MINERALS\VITAMINS
     Indication: PRODUCT USED FOR UNKNOWN INDICATION
     Dosage: 2 DF, QD
     Route: 065
  12. AFINITOR [Suspect]
     Active Substance: EVEROLIMUS
     Indication: BREAST CANCER
     Dosage: 10 MG, QD
     Route: 065
     Dates: start: 20150803, end: 20150830

REACTIONS (40)
  - Bronchiolitis [Unknown]
  - Kyphosis [Unknown]
  - C-reactive protein increased [Unknown]
  - Decreased appetite [Recovered/Resolved]
  - Pulmonary fibrosis [Unknown]
  - Urticaria [Unknown]
  - Aortic arteriosclerosis [Unknown]
  - Malaise [Unknown]
  - Blood phosphorus decreased [Unknown]
  - Blood lactate dehydrogenase increased [Unknown]
  - Metastases to liver [Unknown]
  - Eczema [Not Recovered/Not Resolved]
  - Amylase decreased [Unknown]
  - Cough [Unknown]
  - Blood creatinine increased [Unknown]
  - Pneumonitis [Recovered/Resolved with Sequelae]
  - Pericardial effusion [Unknown]
  - Aortic valve sclerosis [Unknown]
  - Arteriosclerosis coronary artery [Unknown]
  - Protein total decreased [Unknown]
  - Blood urea decreased [Unknown]
  - Pruritus [Unknown]
  - Fatigue [Unknown]
  - Metastases to lung [Unknown]
  - Cardiomegaly [Unknown]
  - Dyspnoea [Unknown]
  - Rash [Unknown]
  - Bronchiectasis [Unknown]
  - Blood calcium decreased [Unknown]
  - Diarrhoea [Not Recovered/Not Resolved]
  - Fluid retention [Not Recovered/Not Resolved]
  - Lymphadenopathy [Unknown]
  - Lung consolidation [Unknown]
  - Stomatitis [Recovered/Resolved]
  - Blood glucose increased [Unknown]
  - General physical health deterioration [Recovering/Resolving]
  - Sneezing [Unknown]
  - Goitre [Unknown]
  - Diaphragmatic hernia [Unknown]
  - Spinal osteoarthritis [Unknown]

NARRATIVE: CASE EVENT DATE: 20150810
